FAERS Safety Report 8744233 (Version 3)
Quarter: 2013Q2

REPORT INFORMATION
  Report Type: Report from Study
  Country: JP (occurrence: JP)
  Receive Date: 20120824
  Receipt Date: 20130524
  Transmission Date: 20140414
  Serious: Yes (Other)
  Sender: FDA-Public Use
  Company Number: JP-009507513-2012SP002322

PATIENT
  Age: 62 Year
  Sex: Female
  Weight: 53 kg

DRUGS (8)
  1. REBETOL [Suspect]
     Indication: CHRONIC HEPATITIS C
     Dosage: 600 MG, QD 200 MG IN THE MORNING AND 400 MG IN THE EVENING
     Route: 048
     Dates: start: 20110126, end: 20111230
  2. FERON [Suspect]
     Indication: CHRONIC HEPATITIS C
     Dosage: 6 MILLION IU, QD
     Route: 041
     Dates: start: 20110126, end: 20110209
  3. FERON [Suspect]
     Dosage: 6 MILLION IU, TIW
     Route: 041
     Dates: start: 20110211, end: 20111230
  4. URSO [Concomitant]
     Indication: CHRONIC HEPATITIS C
     Dosage: 600 MG, QD
     Route: 048
     Dates: start: 20030328
  5. PAXIL [Concomitant]
     Indication: DEPRESSION
     Dosage: 20 MG, QD
     Route: 048
     Dates: start: 20091125
  6. AMOBAN [Concomitant]
     Indication: DEPRESSION
     Dosage: 15 MG, QD
     Route: 048
     Dates: start: 20091125
  7. LORFENAMIN [Concomitant]
     Indication: PYREXIA
     Dosage: 60 MG, UNK
     Dates: start: 20110126, end: 20110209
  8. CELOOP [Concomitant]
     Indication: GASTRITIS
     Dosage: 150 MG, UNK
     Dates: start: 20110127, end: 20110316

REACTIONS (10)
  - Leukopenia [Not Recovered/Not Resolved]
  - Neutropenia [Recovered/Resolved]
  - Pyrexia [Recovered/Resolved]
  - Decreased appetite [Recovered/Resolved]
  - Proteinuria [Recovered/Resolved]
  - Monocytosis [Recovered/Resolved]
  - Thrombocytopenia [Recovered/Resolved]
  - Hypoalbuminaemia [Recovered/Resolved]
  - Blood lactate dehydrogenase increased [Recovered/Resolved]
  - Alanine aminotransferase increased [Recovered/Resolved]
